FAERS Safety Report 13124610 (Version 1)
Quarter: 2017Q1

REPORT INFORMATION
  Report Type: Spontaneous
  Country: FR (occurrence: FR)
  Receive Date: 20170118
  Receipt Date: 20170118
  Transmission Date: 20170428
  Serious: Yes (Other)
  Sender: FDA-Public Use
  Company Number: FR-AUROBINDO-AUR-APL-2017-00523

PATIENT
  Age: 60 Year
  Sex: Male

DRUGS (2)
  1. GABAPENTIN ARROW GENERIQUES CAPSULES [Suspect]
     Active Substance: GABAPENTIN
     Indication: NEURALGIA
     Dosage: 400 MG, DAILY
     Route: 048
     Dates: start: 201607
  2. GABAPENTIN ARROW GENERIQUES CAPSULES [Suspect]
     Active Substance: GABAPENTIN
     Dosage: 100 MG, TWO TIMES A DAY
     Route: 048
     Dates: end: 20170104

REACTIONS (1)
  - Hyperkalaemia [Not Recovered/Not Resolved]
